FAERS Safety Report 15598360 (Version 1)
Quarter: 2018Q4

REPORT INFORMATION
  Report Type: Spontaneous
  Country: US (occurrence: US)
  Receive Date: 20181102
  Receipt Date: 20181102
  Transmission Date: 20190205
  Serious: Yes (Hospitalization)
  Sender: FDA-Public Use
  Company Number: None

PATIENT
  Age: 73 Year
  Sex: Male
  Weight: 94 kg

DRUGS (2)
  1. HYDROCHLOROTHIAZIDE. [Suspect]
     Active Substance: HYDROCHLOROTHIAZIDE
     Route: 048
     Dates: start: 20160315, end: 20180727
  2. CETUXIMAB. [Suspect]
     Active Substance: CETUXIMAB
     Indication: TONSIL CANCER
     Route: 042
     Dates: start: 20180612, end: 20180612

REACTIONS (4)
  - Electrolyte imbalance [None]
  - Drug intolerance [None]
  - Hypomagnesaemia [None]
  - Fall [None]

NARRATIVE: CASE EVENT DATE: 20180619
